FAERS Safety Report 12734006 (Version 1)
Quarter: 2016Q3

REPORT INFORMATION
  Report Type: Spontaneous
  Country: US (occurrence: US)
  Receive Date: 20160912
  Receipt Date: 20160912
  Transmission Date: 20161109
  Serious: No
  Sender: FDA-Public Use
  Company Number: US-ASTRAZENECA-2012SE27362

PATIENT
  Age: 58 Year
  Sex: Male
  Weight: 90.7 kg

DRUGS (8)
  1. PULMICORT RESPULES [Suspect]
     Active Substance: BUDESONIDE
     Indication: SINUSITIS
     Dosage: 0.25 MG DAILY TO BE MIXED WITH 1/8 TO 1/4 TEASPOONFUL OF SALT IN 8 OUNCE OF WATER
     Route: 055
     Dates: start: 20120604
  2. PULMICORT RESPULES [Suspect]
     Active Substance: BUDESONIDE
     Indication: RHINITIS ALLERGIC
     Route: 055
  3. RHINOCORT AQUA [Suspect]
     Active Substance: BUDESONIDE
     Indication: MULTIPLE ALLERGIES
     Route: 045
  4. PULMICORT RESPULES [Suspect]
     Active Substance: BUDESONIDE
     Indication: SINUSITIS
     Route: 055
  5. PULMICORT RESPULES [Suspect]
     Active Substance: BUDESONIDE
     Indication: MULTIPLE ALLERGIES
     Route: 055
  6. PULMICORT RESPULES [Suspect]
     Active Substance: BUDESONIDE
     Indication: MULTIPLE ALLERGIES
     Dosage: 0.25 MG DAILY TO BE MIXED WITH 1/8 TO 1/4 TEASPOONFUL OF SALT IN 8 OUNCE OF WATER
     Route: 055
     Dates: start: 20120604
  7. PULMICORT RESPULES [Suspect]
     Active Substance: BUDESONIDE
     Indication: RHINITIS ALLERGIC
     Dosage: 0.25 MG DAILY TO BE MIXED WITH 1/8 TO 1/4 TEASPOONFUL OF SALT IN 8 OUNCE OF WATER
     Route: 055
     Dates: start: 20120604
  8. MULTIVITAMIN [Concomitant]
     Active Substance: VITAMINS

REACTIONS (8)
  - Off label use [Unknown]
  - Product use issue [Not Recovered/Not Resolved]
  - Drug administered to patient of inappropriate age [Not Recovered/Not Resolved]
  - Intentional product misuse [Not Recovered/Not Resolved]
  - Drug effect incomplete [Unknown]
  - Intercepted drug prescribing error [Unknown]
  - Upper respiratory tract infection [Not Recovered/Not Resolved]
  - Circumstance or information capable of leading to medication error [Unknown]
